FAERS Safety Report 4874973-7 (Version None)
Quarter: 2006Q1

REPORT INFORMATION
  Report Type: 
  Country: None (occurrence: None)
  Receive Date: 20060104
  Receipt Date: 20051221
  Transmission Date: 20060701
  Serious: Yes (Hospitalization, Other)
  Sender: FDA-Public Use
  Company Number: 2005168553

PATIENT
  Age: 13 Year
  Sex: Female
  Weight: 48 kg

DRUGS (7)
  1. ZYVOX [Suspect]
     Indication: ENTEROCOCCAL INFECTION
     Dosage: 1200 MG (600 MG, 2 IN 1 D), INTRAVENOUS
     Route: 042
     Dates: start: 20051114, end: 20051212
  2. ZYVOX [Suspect]
     Indication: WOUND INFECTION
     Dosage: 1200 MG (600 MG, 2 IN 1 D), INTRAVENOUS
     Route: 042
     Dates: start: 20051114, end: 20051212
  3. IMMUNOSUPPRESSIVE AGENTS (IMMUNOSUPPRESSIVE AGENTS) [Concomitant]
  4. CHEMOTHERAPY NOS (CHEMOTHERAPY NOS) [Concomitant]
  5. TARGOCID [Concomitant]
  6. MELATONIN (MELATONIN) [Concomitant]
  7. ORGAMETRIL (LYNESTRENOL) [Concomitant]

REACTIONS (7)
  - AURA [None]
  - BURKITT'S LYMPHOMA [None]
  - BURNING SENSATION [None]
  - CONVULSION [None]
  - ENTEROCOCCAL INFECTION [None]
  - METASTATIC NEOPLASM [None]
  - PARAESTHESIA [None]
